FAERS Safety Report 18402989 (Version 1)
Quarter: 2020Q4

REPORT INFORMATION
  Report Type: Spontaneous
  Country: IT (occurrence: IT)
  Receive Date: 20201020
  Receipt Date: 20201020
  Transmission Date: 20210114
  Serious: Yes (Other)
  Sender: FDA-Public Use
  Company Number: IT-TEVA-2020-IT-1839172

PATIENT
  Age: 49 Year
  Sex: Female

DRUGS (2)
  1. ENTECAVIR TEVA [Suspect]
     Active Substance: ENTECAVIR
     Indication: LIVER DISORDER
     Dosage: 5 MG
     Route: 048
  2. SIMVASTATIN. [Concomitant]
     Active Substance: SIMVASTATIN

REACTIONS (2)
  - Pruritus [Recovering/Resolving]
  - Skin reaction [Recovering/Resolving]

NARRATIVE: CASE EVENT DATE: 20200818
